FAERS Safety Report 24836778 (Version 2)
Quarter: 2025Q3

REPORT INFORMATION
  Report Type: Spontaneous
  Country: US (occurrence: US)
  Receive Date: 20250113
  Receipt Date: 20250703
  Transmission Date: 20251021
  Serious: No
  Sender: BRISTOL-MYERS SQUIBB COMPANY
  Company Number: US-BRISTOL-MYERS SQUIBB COMPANY-2025-004394

PATIENT
  Age: 84 Year
  Sex: Female

DRUGS (1)
  1. LENALIDOMIDE [Suspect]
     Active Substance: LENALIDOMIDE
     Indication: Myelodysplastic syndrome with excess blasts
     Dosage: FREQUENCY: TAKE 1 CAPSULE BY MOUTH EVERY DAY FOR 28 DAYS
     Route: 048

REACTIONS (3)
  - Nasopharyngitis [Recovering/Resolving]
  - Off label use [Unknown]
  - Product dose omission issue [Unknown]

NARRATIVE: CASE EVENT DATE: 20250601
